FAERS Safety Report 22068285 (Version 2)
Quarter: 2023Q1

REPORT INFORMATION
  Report Type: Spontaneous
  Country: CZ (occurrence: CZ)
  Receive Date: 20230307
  Receipt Date: 20230315
  Transmission Date: 20230417
  Serious: Yes (Death, Other)
  Sender: FDA-Public Use
  Company Number: CZ-CELLTRION INC.-2023CZ004574

PATIENT

DRUGS (14)
  1. RITUXIMAB [Suspect]
     Active Substance: RITUXIMAB
     Indication: Chronic myeloid leukaemia
     Dosage: DAY 1 OF CHEMOTHERAPY
  2. RITUXIMAB [Suspect]
     Active Substance: RITUXIMAB
     Dosage: DAY 2 OF CHEMOTHERAPY
  3. RITUXIMAB [Suspect]
     Active Substance: RITUXIMAB
     Dosage: DAY 3 OF CHEMOTHERAPY
  4. VINCRISTINE [Suspect]
     Active Substance: VINCRISTINE
     Indication: Chronic myeloid leukaemia
     Dosage: 2 MG, QD DAYS 7 AND 14 OF CHEMOTHERAPY
  5. ASPARAGINASE [Suspect]
     Active Substance: ASPARAGINASE
     Indication: Chronic myeloid leukaemia
     Dosage: 9000 IE DAYS 17 AND 25 OF CHEMOTHERAPY
  6. INTERFERON ALFA-2A [Suspect]
     Active Substance: INTERFERON ALFA-2A
     Indication: Chronic myeloid leukaemia
     Dosage: 3 MIU INTERVAL 0.5 WEEK
     Dates: start: 201503
  7. CYTARABINE [Suspect]
     Active Substance: CYTARABINE
     Indication: Chronic myeloid leukaemia
     Route: 037
  8. DAUNORUBICIN HYDROCHLORIDE [Suspect]
     Active Substance: DAUNORUBICIN HYDROCHLORIDE
     Indication: Chronic myeloid leukaemia
     Dosage: 80 MG, QD DAYS 7-8 AND 14-15 OF CHEMOTHERAPY
  9. METHOTREXATE [Suspect]
     Active Substance: METHOTREXATE
     Indication: Chronic myeloid leukaemia
     Route: 037
  10. IMATINIB [Suspect]
     Active Substance: IMATINIB
     Indication: Chronic myeloid leukaemia
     Dosage: 400 MG
  11. DEXAMETHASONE [Suspect]
     Active Substance: DEXAMETHASONE
     Indication: Chronic myeloid leukaemia
     Route: 037
  12. CYCLOPHOSPHAMIDE [Suspect]
     Active Substance: CYCLOPHOSPHAMIDE
     Indication: Chronic myeloid leukaemia
     Dosage: 360 MG, QD DAYS 4-6 OF CHEMOTHERAPY
  13. GRANULOCYTE COLONY-STIMULATING FACTOR NOS [Concomitant]
     Active Substance: GRANULOCYTE COLONY-STIMULATING FACTOR NOS
     Indication: Neutropenia
     Dosage: 48 MICROGRAM 13 TIMES OVER EIGHT WEEKS
  14. DASATINIB [Concomitant]
     Active Substance: DASATINIB
     Indication: Chronic myeloid leukaemia
     Dosage: 40 MG, QD FIVE TIMES PER WEEK.

REACTIONS (10)
  - Pneumonia influenzal [Fatal]
  - Ileus [Unknown]
  - Nephrotic syndrome [Unknown]
  - Pancreatitis acute [Unknown]
  - Liver disorder [Unknown]
  - Mucosal inflammation [Unknown]
  - Cerebral toxoplasmosis [Unknown]
  - Pneumonia fungal [Unknown]
  - Renal failure [Unknown]
  - Off label use [Unknown]
